FAERS Safety Report 6647891-1 (Version None)
Quarter: 2010Q1

REPORT INFORMATION
  Report Type: 
  Country: None (occurrence: None)
  Receive Date: 20100324
  Receipt Date: 20100318
  Transmission Date: 20100710
  Serious: Yes (Death, Hospitalization)
  Sender: FDA-Public Use
  Company Number: DE-JNJFOC-20100306222

PATIENT
  Sex: Female

DRUGS (3)
  1. REOPRO [Suspect]
     Indication: ACUTE MYOCARDIAL INFARCTION
     Route: 016
  2. REOPRO [Suspect]
     Route: 041
  3. CONTRAST MEDIA [Concomitant]
     Indication: CATHETERISATION CARDIAC

REACTIONS (2)
  - INCORRECT ROUTE OF DRUG ADMINISTRATION [None]
  - RENAL FAILURE ACUTE [None]
